FAERS Safety Report 21177752 (Version 3)
Quarter: 2022Q4

REPORT INFORMATION
  Report Type: Report from Study
  Country: US (occurrence: US)
  Receive Date: 20220805
  Receipt Date: 20221027
  Transmission Date: 20230113
  Serious: Yes (Other)
  Sender: FDA-Public Use
  Company Number: US-BIOVITRUM-2022US01307

PATIENT
  Age: 64 Year
  Sex: Female

DRUGS (14)
  1. KINERET [Suspect]
     Active Substance: ANAKINRA
     Indication: Still^s disease
     Dates: start: 20220111
  2. KINERET [Suspect]
     Active Substance: ANAKINRA
     Dates: start: 20220303
  3. KINERET [Suspect]
     Active Substance: ANAKINRA
     Dosage: NEXT 2 DAYS
  4. KINERET [Suspect]
     Active Substance: ANAKINRA
     Dates: start: 202201
  5. PREDNISONE [Concomitant]
     Active Substance: PREDNISONE
     Dosage: 7.5 MG
  6. METHOTREXATE [Concomitant]
     Active Substance: METHOTREXATE
  7. DUPILUMAB [Concomitant]
     Active Substance: DUPILUMAB
  8. LOSARTAN POTASSIUM [Concomitant]
     Active Substance: LOSARTAN POTASSIUM
  9. SINGULAIR [Concomitant]
     Active Substance: MONTELUKAST SODIUM
  10. DOXEPIN [Concomitant]
     Active Substance: DOXEPIN
  11. ANASTROZOLE [Concomitant]
     Active Substance: ANASTROZOLE
  12. LEVEMIR [Concomitant]
     Active Substance: INSULIN DETEMIR
  13. METOPROLOL [Concomitant]
     Active Substance: METOPROLOL
  14. HUMALOG [Concomitant]
     Active Substance: INSULIN LISPRO

REACTIONS (19)
  - Pneumonia [Unknown]
  - Cough [Unknown]
  - Pyrexia [Unknown]
  - Chills [Unknown]
  - Illness [Unknown]
  - Dysphagia [Unknown]
  - Dysania [Unknown]
  - Dyspnoea [Unknown]
  - Inflammatory marker increased [Unknown]
  - C-reactive protein increased [Unknown]
  - Red blood cell sedimentation rate increased [Unknown]
  - Injection site erythema [Unknown]
  - Therapeutic reaction time decreased [Unknown]
  - Injection site rash [Unknown]
  - Rash pruritic [Unknown]
  - Rash [Unknown]
  - Injection site reaction [Unknown]
  - Product dose omission issue [Unknown]
  - Off label use [Not Recovered/Not Resolved]

NARRATIVE: CASE EVENT DATE: 20220111
